FAERS Safety Report 4850220-7 (Version None)
Quarter: 2005Q4

REPORT INFORMATION
  Report Type: 
  Country: None (occurrence: None)
  Receive Date: 20051123
  Receipt Date: 20051021
  Transmission Date: 20060501
  Serious: No
  Sender: FDA-Public Use
  Company Number: 218603

PATIENT
  Age: 43 Year
  Sex: Female
  Weight: 109 kg

DRUGS (3)
  1. RAPTIVA [Suspect]
     Indication: PSORIASIS
     Dosage: 1.33 ML, 1/WEEK, SUBCUTANEOUS
     Route: 058
     Dates: start: 20040913, end: 20051001
  2. ABILIT (SULPIRIDE) [Concomitant]
  3. AMEKRIN (AMSACRINE) [Concomitant]

REACTIONS (1)
  - HYPERKERATOSIS [None]
